FAERS Safety Report 4608591-2 (Version None)
Quarter: 2005Q1

REPORT INFORMATION
  Report Type: 
  Country: None (occurrence: None)
  Receive Date: 20050315
  Receipt Date: 20050308
  Transmission Date: 20050727
  Serious: Yes (Death)
  Sender: FDA-Public Use
  Company Number: US-JNJFOC-20050204608

PATIENT
  Sex: Female
  Weight: 49.9 kg

DRUGS (2)
  1. DURAGESIC-100 [Suspect]
     Route: 062
     Dates: end: 20050212
  2. DURAGESIC-100 [Suspect]
     Route: 062
     Dates: end: 20050212

REACTIONS (3)
  - DEATH [None]
  - FEELING ABNORMAL [None]
  - LETHARGY [None]
